FAERS Safety Report 14444328 (Version 1)
Quarter: 2018Q1

REPORT INFORMATION
  Report Type: Spontaneous
  Country: US (occurrence: US)
  Receive Date: 20180125
  Receipt Date: 20180125
  Transmission Date: 20180509
  Serious: No
  Sender: FDA-Public Use
  Company Number: US-SHIRE-US201801939

PATIENT
  Age: 68 Year
  Sex: Female
  Weight: 63.95 kg

DRUGS (1)
  1. CUVITRU [Suspect]
     Active Substance: HUMAN IMMUNOGLOBULIN G
     Indication: PRODUCT USED FOR UNKNOWN INDICATION
     Dosage: 7 G, 1X/WEEK
     Route: 058
     Dates: start: 20180102

REACTIONS (1)
  - Hepatic enzyme increased [Unknown]
